FAERS Safety Report 9290823 (Version 2)
Quarter: 2013Q2

REPORT INFORMATION
  Report Type: Report from Study
  Country: JP (occurrence: JP)
  Receive Date: 20130515
  Receipt Date: 20130603
  Transmission Date: 20140414
  Serious: Yes (Hospitalization)
  Sender: FDA-Public Use
  Company Number: JP-UCBSA-085783

PATIENT
  Age: 21 Year
  Sex: Female
  Weight: 51.4 kg

DRUGS (6)
  1. E KEPPRA [Suspect]
     Indication: COMPLEX PARTIAL SEIZURES
     Route: 048
     Dates: start: 20120119
  2. IFOMIDE [Suspect]
     Dosage: DAILY DOSE: 1 G
     Route: 041
     Dates: end: 20120120
  3. LASTET [Suspect]
     Dosage: DAILY DOSE: 90 MG
     Route: 041
     Dates: end: 20120120
  4. CISPLATIN [Suspect]
     Dosage: DAILY DOSE: 30 MG
     Route: 041
     Dates: end: 20120120
  5. TOPINA [Concomitant]
     Indication: COMPLEX PARTIAL SEIZURES
     Dosage: DAILY DOSE: 300 MG
     Route: 048
     Dates: end: 20120118
  6. RIVOTRIL [Concomitant]
     Indication: COMPLEX PARTIAL SEIZURES
     Dosage: DAILY DOSE: 1 MG
     Route: 048

REACTIONS (2)
  - Leukopenia [Recovering/Resolving]
  - Neutrophil count decreased [Recovered/Resolved]
